FAERS Safety Report 9648528 (Version 1)
Quarter: 2013Q4

REPORT INFORMATION
  Report Type: Other
  Country: US (occurrence: US)
  Receive Date: 20131028
  Receipt Date: 20131028
  Transmission Date: 20140711
  Serious: Yes (Other)
  Sender: FDA-Public Use
  Company Number: US-SHIRE-ALL1-2013-07173

PATIENT
  Sex: Male

DRUGS (1)
  1. ELAPRASE [Suspect]
     Indication: MUCOPOLYSACCHARIDOSIS II
     Dosage: 18 MG, (3 VIALS) 1X/WEEK
     Route: 041
     Dates: start: 20070430, end: 201305

REACTIONS (5)
  - Scoliosis [Unknown]
  - Spinal deformity [Unknown]
  - Hydrocephalus [Unknown]
  - Hypersomnia [Unknown]
  - Decreased appetite [Unknown]
